FAERS Safety Report 5951423-0 (Version None)
Quarter: 2008Q4

REPORT INFORMATION
  Report Type: 
  Country: None (occurrence: None)
  Receive Date: 20081111
  Receipt Date: 20081111
  Transmission Date: 20090506
  Serious: Yes (Other)
  Sender: FDA-Public Use
  Company Number: None

PATIENT
  Age: 39 Year
  Sex: Female
  Weight: 90.7194 kg

DRUGS (1)
  1. LEXAPRO [Suspect]
     Indication: DEPRESSION
     Dosage: 5 MG EVERY OTHER DAY PO
     Route: 048
     Dates: start: 20030108, end: 20080720

REACTIONS (8)
  - BRUXISM [None]
  - DERMATITIS EXFOLIATIVE [None]
  - HYPERTENSION [None]
  - PARAESTHESIA [None]
  - PHOTOPSIA [None]
  - THYROID CYST [None]
  - VERTIGO [None]
  - WITHDRAWAL SYNDROME [None]
